FAERS Safety Report 24934706 (Version 2)
Quarter: 2025Q1

REPORT INFORMATION
  Report Type: Spontaneous
  Country: CA (occurrence: CA)
  Receive Date: 20250206
  Receipt Date: 20250210
  Transmission Date: 20250409
  Serious: Yes (Death)
  Sender: SAMSUNG BIOEPIS
  Company Number: CA-SAMSUNG BIOEPIS-SB-2025-03576

PATIENT
  Age: 99 Year
  Sex: Female

DRUGS (1)
  1. BYOOVIZ [Suspect]
     Active Substance: RANIBIZUMAB-NUNA
     Indication: Neovascular age-related macular degeneration
     Route: 031
     Dates: start: 20240607, end: 20240823

REACTIONS (1)
  - Death [Fatal]
